FAERS Safety Report 4308446-7 (Version None)
Quarter: 2004Q1

REPORT INFORMATION
  Report Type: 
  Country: None (occurrence: None)
  Receive Date: 20040226
  Receipt Date: 20031229
  Transmission Date: 20041129
  Serious: Yes (Hospitalization)
  Sender: FDA-Public Use
  Company Number: 200319202IUS

PATIENT
  Sex: Male

DRUGS (1)
  1. CELEBREX [Suspect]

REACTIONS (1)
  - GASTRIC HAEMORRHAGE [None]
